FAERS Safety Report 18496364 (Version 1)
Quarter: 2020Q4

REPORT INFORMATION
  Report Type: Spontaneous
  Country: US (occurrence: US)
  Receive Date: 20201112
  Receipt Date: 20201112
  Transmission Date: 20210114
  Serious: Yes (Other)
  Sender: FDA-Public Use
  Company Number: None

PATIENT
  Age: 78 Year

DRUGS (5)
  1. RETACRIT [Concomitant]
     Active Substance: EPOETIN ALFA-EPBX
     Indication: MYELODYSPLASTIC SYNDROME
     Dates: start: 20200917, end: 20201028
  2. RETACRIT [Concomitant]
     Active Substance: EPOETIN ALFA-EPBX
     Indication: ANAEMIA
     Dates: start: 20200917, end: 20201028
  3. RETACRIT [Suspect]
     Active Substance: EPOETIN ALFA-EPBX
     Indication: MYELODYSPLASTIC SYNDROME
     Dosage: ?          OTHER FREQUENCY:WEEKLY;?
     Route: 058
     Dates: start: 20200917, end: 20201028
  4. RETACRIT [Suspect]
     Active Substance: EPOETIN ALFA-EPBX
     Indication: ANAEMIA
     Dosage: ?          OTHER FREQUENCY:WEEKLY;?
     Route: 058
     Dates: start: 20200917, end: 20201028
  5. RETACRIT [Concomitant]
     Active Substance: EPOETIN ALFA-EPBX

REACTIONS (1)
  - Aplasia pure red cell [None]

NARRATIVE: CASE EVENT DATE: 20201031
